FAERS Safety Report 8914324 (Version 2)
Quarter: 2013Q1

REPORT INFORMATION
  Report Type: Spontaneous
  Country: US (occurrence: US)
  Receive Date: 20121119
  Receipt Date: 20130215
  Transmission Date: 20140127
  Serious: Yes (Other)
  Sender: FDA-Public Use
  Company Number: US-AMGEN-USASP2012073502

PATIENT
  Age: 34 Year
  Sex: Female
  Weight: 136.96 kg

DRUGS (5)
  1. ENBREL [Suspect]
     Indication: RHEUMATOID ARTHRITIS
     Dosage: 50 MG, QWK
     Route: 058
     Dates: start: 20120508, end: 201211
  2. PREDNISONE [Concomitant]
     Indication: RHEUMATOID ARTHRITIS
     Dosage: 15 MG, QD
     Route: 048
     Dates: start: 2006
  3. METHOTREXATE [Concomitant]
     Indication: RHEUMATOID ARTHRITIS
     Dosage: 20 MG, QWK
     Route: 048
     Dates: start: 200911
  4. DICLOFENAC [Concomitant]
     Indication: RHEUMATOID ARTHRITIS
     Dosage: 75 MG, BID
     Route: 048
     Dates: start: 200904
  5. LORTAB                             /00607101/ [Concomitant]
     Indication: RHEUMATOID ARTHRITIS
     Dosage: 5 MG, BID
     Route: 048
     Dates: start: 200911

REACTIONS (1)
  - Foot fracture [Recovered/Resolved]
